FAERS Safety Report 26052968 (Version 1)
Quarter: 2025Q4

REPORT INFORMATION
  Report Type: Spontaneous
  Country: US (occurrence: None)
  Receive Date: 20251115
  Receipt Date: 20251115
  Transmission Date: 20260117
  Serious: No
  Sender: FDA-CTU
  Company Number: None

PATIENT
  Age: 61 Year
  Sex: Female
  Weight: 99 kg

DRUGS (6)
  1. REPATHA [Suspect]
     Active Substance: EVOLOCUMAB
     Indication: Type V hyperlipidaemia
     Dosage: OTHER QUANTITY : 1 INJECTION(S);?OTHER FREQUENCY : Q2W;?
     Route: 058
     Dates: start: 20250907, end: 20251019
  2. LOSARTAN [Concomitant]
     Active Substance: LOSARTAN
  3. DULOXETINE [Concomitant]
     Active Substance: DULOXETINE
  4. TIZANIDINE [Concomitant]
     Active Substance: TIZANIDINE
  5. NAPROXEN [Concomitant]
     Active Substance: NAPROXEN
  6. PROBIOTICS NOS [Concomitant]
     Active Substance: PROBIOTICS NOS

REACTIONS (1)
  - Back pain [None]

NARRATIVE: CASE EVENT DATE: 20251001
